FAERS Safety Report 9549266 (Version 2)
Quarter: 2013Q4

REPORT INFORMATION
  Report Type: Spontaneous
  Country: US (occurrence: US)
  Receive Date: 20130924
  Receipt Date: 20131003
  Transmission Date: 20140711
  Serious: No
  Sender: FDA-Public Use
  Company Number: US-PFIZER INC-2013270139

PATIENT
  Age: 5 Year
  Sex: Female
  Weight: 17 kg

DRUGS (6)
  1. QUILLIVANT XR [Suspect]
     Indication: ATTENTION DEFICIT/HYPERACTIVITY DISORDER
     Dosage: 2 ML, UNK
     Dates: start: 201306
  2. ONFI [Concomitant]
     Indication: EPILEPSY
     Dosage: UNK
  3. BANZEL [Concomitant]
     Indication: EPILEPSY
     Dosage: UNK
  4. KEPPRA [Concomitant]
     Indication: EPILEPSY
     Dosage: UNK
  5. NEXIUM [Concomitant]
     Indication: GASTROOESOPHAGEAL REFLUX DISEASE
     Dosage: UNK
  6. ZYRTEC [Concomitant]
     Indication: HYPERSENSITIVITY
     Dosage: UNK

REACTIONS (2)
  - Drug effect decreased [Unknown]
  - Abnormal behaviour [Unknown]
